FAERS Safety Report 9435429 (Version 2)
Quarter: 2013Q3

REPORT INFORMATION
  Report Type: Report from Study
  Country: GB (occurrence: GB)
  Receive Date: 20130801
  Receipt Date: 20130806
  Transmission Date: 20140515
  Serious: Yes (Hospitalization)
  Sender: FDA-Public Use
  Company Number: GB-GLAXOSMITHKLINE-B0911830A

PATIENT
  Age: 62 Year
  Sex: Female

DRUGS (6)
  1. GSK1120212 [Suspect]
     Indication: METASTATIC MALIGNANT MELANOMA
     Dosage: 2MG PER DAY
     Route: 048
     Dates: start: 20130709
  2. PACLITAXEL [Suspect]
     Indication: METASTATIC MALIGNANT MELANOMA
     Dosage: 129MG PER DAY
     Route: 042
     Dates: start: 20130709, end: 20130716
  3. THYROXINE [Concomitant]
     Indication: HYPOTHYROIDISM
     Route: 048
     Dates: start: 2008
  4. SIMVASTATIN [Concomitant]
     Indication: HYPERCHOLESTEROLAEMIA
     Dosage: 40MG PER DAY
     Route: 048
     Dates: start: 2008
  5. AMITRIPTYLINE [Concomitant]
     Indication: BACK PAIN
     Dosage: 10MG PER DAY
     Route: 048
     Dates: start: 2009
  6. OMEPRAZOLE [Concomitant]
     Indication: GASTRIC PH DECREASED
     Dosage: 20MG PER DAY
     Route: 048
     Dates: start: 2009

REACTIONS (1)
  - Urinary tract infection [Recovered/Resolved]
